FAERS Safety Report 25803192 (Version 1)
Quarter: 2025Q3

REPORT INFORMATION
  Report Type: Spontaneous
  Country: US (occurrence: US)
  Receive Date: 20250915
  Receipt Date: 20250915
  Transmission Date: 20251020
  Serious: No
  Sender: BAUSCH AND LOMB
  Company Number: US-BAUSCHBL-2025BNL015963

PATIENT
  Age: 80 Year
  Sex: Female

DRUGS (2)
  1. BLINK GEL TEARS [Suspect]
     Active Substance: POLYETHYLENE GLYCOL 400
     Indication: Routine health maintenance
     Route: 047
     Dates: start: 20250910
  2. XIIDRA [Suspect]
     Active Substance: LIFITEGRAST
     Indication: Dry eye
     Route: 047

REACTIONS (3)
  - Vision blurred [Recovering/Resolving]
  - Product availability issue [Unknown]
  - Drug ineffective [Unknown]

NARRATIVE: CASE EVENT DATE: 20250901
